FAERS Safety Report 16433056 (Version 2)
Quarter: 2019Q2

REPORT INFORMATION
  Report Type: Spontaneous
  Country: IL (occurrence: IL)
  Receive Date: 20190614
  Receipt Date: 20190619
  Transmission Date: 20190711
  Serious: No
  Sender: FDA-Public Use
  Company Number: PHHY2019IL136683

PATIENT
  Age: 48 Year
  Sex: Female

DRUGS (1)
  1. HYDROXYCHLOROQUINE [Suspect]
     Active Substance: HYDROXYCHLOROQUINE
     Indication: LICHEN PLANUS
     Dosage: 400 MG, QD
     Route: 048

REACTIONS (2)
  - Visual field defect [Not Recovered/Not Resolved]
  - Product use in unapproved indication [Unknown]
